FAERS Safety Report 9244955 (Version 1)
Quarter: 2013Q2

REPORT INFORMATION
  Report Type: Spontaneous
  Country: ES (occurrence: ES)
  Receive Date: 20130422
  Receipt Date: 20130422
  Transmission Date: 20140414
  Serious: Yes (Other)
  Sender: FDA-Public Use
  Company Number: ES-JNJFOC-20130409757

PATIENT
  Age: 61 Month
  Sex: Male

DRUGS (1)
  1. IBUPROFEN [Suspect]
     Indication: PYREXIA
     Route: 048

REACTIONS (1)
  - Drug-induced liver injury [Recovering/Resolving]
